FAERS Safety Report 5818452-9 (Version None)
Quarter: 2008Q3

REPORT INFORMATION
  Report Type: 
  Country: None (occurrence: None)
  Receive Date: 20080716
  Receipt Date: 20080703
  Transmission Date: 20090109
  Serious: Yes (Death, Hospitalization)
  Sender: FDA-Public Use
  Company Number: 2008001114

PATIENT
  Age: 60 Year
  Sex: Male

DRUGS (12)
  1. ERLOTINIB (ERLOTINIB) (TABLET) (ERLOTINIB) [Suspect]
     Indication: NON-SMALL CELL LUNG CANCER
     Dosage: (150 MG, QD), ORAL
     Route: 048
     Dates: start: 20080327, end: 20080430
  2. MAXIPIME [Suspect]
     Dosage: INTRAVENOUS
     Route: 042
     Dates: start: 20080403, end: 20080422
  3. CIPROFLOXACIN HCL [Suspect]
     Dosage: INTRAVENOUS
     Route: 042
     Dates: start: 20080423, end: 20080424
  4. MEROPEN (MEROPENEM) [Suspect]
     Dosage: INTRAVENOUS
     Route: 042
     Dates: start: 20080425, end: 20080428
  5. MUCODYNE (CARBOCISTEINE) [Concomitant]
  6. MAGLAX (MAGNESIUM OXIDE) [Concomitant]
  7. NOVAMIN (PROCHLORPERAZINE) [Concomitant]
  8. NAIXAN (NAPROXEN SODIUM) [Concomitant]
  9. OXYCONTIN [Concomitant]
  10. OXINORM (ORGOTEIN) [Concomitant]
  11. ROPION (FLURBIPROFEN AXETIL) [Concomitant]
  12. LENDORM [Concomitant]

REACTIONS (7)
  - ALANINE AMINOTRANSFERASE INCREASED [None]
  - ASPARTATE AMINOTRANSFERASE INCREASED [None]
  - BLOOD ALKALINE PHOSPHATASE INCREASED [None]
  - BLOOD CREATINE PHOSPHOKINASE DECREASED [None]
  - INTERSTITIAL LUNG DISEASE [None]
  - LABORATORY TEST ABNORMAL [None]
  - RASH [None]
